FAERS Safety Report 7807573-7 (Version None)
Quarter: 2011Q4

REPORT INFORMATION
  Report Type: 
  Country: None (occurrence: None)
  Receive Date: 20111011
  Receipt Date: 20111007
  Transmission Date: 20120403
  Serious: Yes (Death, Hospitalization, Other)
  Sender: FDA-Public Use
  Company Number: PHHY2011SV87963

PATIENT
  Sex: Female

DRUGS (2)
  1. GLEEVEC [Suspect]
     Indication: CHRONIC MYELOID LEUKAEMIA
     Dosage: 200 MG, UNK
     Route: 065
     Dates: start: 20110127
  2. DASATINIB [Suspect]

REACTIONS (3)
  - BLAST CELL CRISIS [None]
  - DEATH [None]
  - DRUG RESISTANCE [None]
